FAERS Safety Report 10400286 (Version 1)
Quarter: 2014Q3

REPORT INFORMATION
  Report Type: Spontaneous
  Country: FR (occurrence: FR)
  Receive Date: 20140821
  Receipt Date: 20140821
  Transmission Date: 20150326
  Serious: Yes (Hospitalization)
  Sender: FDA-Public Use
  Company Number: FR-ASTRAZENECA-2014SE59959

PATIENT
  Age: 25294 Day
  Sex: Male

DRUGS (5)
  1. ATACAND [Suspect]
     Active Substance: CANDESARTAN CILEXETIL
     Route: 048
     Dates: end: 20140624
  2. CEFTRIAXONE. [Concomitant]
     Active Substance: CEFTRIAXONE
     Indication: BRONCHITIS
     Route: 048
     Dates: start: 20140620, end: 20140625
  3. NOVATREX NOS [Concomitant]
     Active Substance: AZITHROMYCIN OR METHOTREXATE SODIUM
     Indication: RHEUMATOID ARTHRITIS
     Route: 048
     Dates: end: 20140624
  4. LASILIX SPECIAL [Suspect]
     Active Substance: FUROSEMIDE
     Route: 048
  5. METFORMINE [Concomitant]
     Active Substance: METFORMIN HYDROCHLORIDE
     Route: 048
     Dates: end: 20140624

REACTIONS (2)
  - Condition aggravated [Recovered/Resolved]
  - Renal failure acute [Recovered/Resolved]

NARRATIVE: CASE EVENT DATE: 201406
